FAERS Safety Report 6676309-8 (Version None)
Quarter: 2010Q2

REPORT INFORMATION
  Report Type: 
  Country: None (occurrence: None)
  Receive Date: 20100412
  Receipt Date: 20100405
  Transmission Date: 20101027
  Serious: Yes (Hospitalization)
  Sender: FDA-Public Use
  Company Number: US-SANOFI-AVENTIS-2010SA016057

PATIENT
  Age: 75 Year
  Sex: Male

DRUGS (7)
  1. TAXOTERE [Suspect]
     Indication: PROSTATE CANCER
     Dosage: EVERY 3 WEEKS
     Route: 041
     Dates: start: 20091201, end: 20091201
  2. TAXOTERE [Suspect]
     Dosage: EVERY 3 WEEKS
     Route: 041
     Dates: start: 20100223, end: 20100223
  3. INVESTIGATIONAL DRUG [Suspect]
     Indication: PROSTATE CANCER
     Route: 048
     Dates: start: 20091201, end: 20100222
  4. PREDNISONE TAB [Suspect]
     Indication: PROSTATE CANCER
     Route: 048
     Dates: start: 20091201
  5. DEXAMETHASONE [Suspect]
     Indication: PREMEDICATION
     Dosage: 10 MG AT 12 HOURS, 3 HOURS, AND 1 HOUR PRIOR TO  DOCETAXEL INFUSION AS PRE-MEDICATION.
     Route: 042
     Dates: start: 20091201, end: 20091201
  6. DEXAMETHASONE [Suspect]
     Dosage: 10 MG AT 12 HOURS, 3 HOURS, AND 1 HOUR PRIOR TO  DOCETAXEL INFUSION AS PRE-MEDICATION.
     Route: 042
     Dates: start: 20091201, end: 20091201
  7. INFLIXIMAB [Concomitant]
     Dosage: EVERY 6 WEEKS
     Route: 042

REACTIONS (4)
  - DEHYDRATION [None]
  - DIARRHOEA [None]
  - LISTERIOSIS [None]
  - PULMONARY HYPERTENSION [None]
